FAERS Safety Report 4619886-0 (Version None)
Quarter: 2005Q1

REPORT INFORMATION
  Report Type: 
  Country: None (occurrence: None)
  Receive Date: 20050321
  Receipt Date: 20050321
  Transmission Date: 20050727
  Serious: Yes (Death)
  Sender: FDA-Public Use
  Company Number: None

PATIENT
  Age: 52 Year
  Sex: Male
  Weight: 85.2762 kg

DRUGS (3)
  1. ZOLOFT [Suspect]
     Indication: DEPRESSION
     Dosage: 50 MG. Q DAILY
     Dates: start: 20050208, end: 20050218
  2. ZOLOFT [Suspect]
     Indication: PROPHYLAXIS
     Dosage: 50 MG. Q DAILY
     Dates: start: 20050208, end: 20050218
  3. PLACEBO [Suspect]

REACTIONS (2)
  - FEELING ABNORMAL [None]
  - PNEUMONIA [None]
